FAERS Safety Report 10441212 (Version 4)
Quarter: 2014Q4

REPORT INFORMATION
  Report Type: Report from Study
  Country: US (occurrence: US)
  Receive Date: 20140909
  Receipt Date: 20141104
  Transmission Date: 20150528
  Serious: Yes (Death, Hospitalization, Other)
  Sender: FDA-Public Use
  Company Number: US-BAYER-2014-096054

PATIENT
  Age: 68 Year
  Sex: Female
  Weight: 98.41 kg

DRUGS (13)
  1. NEXAVAR [Suspect]
     Active Substance: SORAFENIB
     Indication: HEPATOCELLULAR CARCINOMA
     Dosage: 4X200MG
     Route: 048
     Dates: start: 20130625
  2. POTASSIUM CHLORIDE. [Concomitant]
     Active Substance: POTASSIUM CHLORIDE
     Dosage: 10MG
  3. VITAMIN K [MENADIONE] [Concomitant]
  4. BENADRYL [ACRIVASTINE] [Concomitant]
     Dosage: 25MG
     Route: 048
  5. FUROSEMIDE [FUROSEMIDE] [Concomitant]
     Dosage: 40MG/60MG BID
     Route: 048
  6. PANTOPRAZOLE [Concomitant]
     Active Substance: PANTOPRAZOLE SODIUM
     Dosage: 40 MG
     Route: 048
  7. SPIRONOLACTONE. [Concomitant]
     Active Substance: SPIRONOLACTONE
     Dosage: 100MG
  8. ONDANSETRON [Concomitant]
     Active Substance: ONDANSETRON
  9. SUCRALFATE. [Concomitant]
     Active Substance: SUCRALFATE
     Dosage: 1MG
  10. NEXAVAR [Suspect]
     Active Substance: SORAFENIB
     Indication: HEPATOCELLULAR CARCINOMA
     Dosage: 400 MG, BID
     Route: 048
     Dates: start: 20140506, end: 20140527
  11. VITAMIN D [Concomitant]
     Active Substance: CHOLECALCIFEROL
  12. LASIX [Concomitant]
     Active Substance: FUROSEMIDE
  13. IPRATROPIUM BROMIDE. [Concomitant]
     Active Substance: IPRATROPIUM BROMIDE

REACTIONS (10)
  - Haemorrhage [Fatal]
  - Haemorrhage [None]
  - Renal haemorrhage [Fatal]
  - Acute kidney injury [Fatal]
  - Hepatic haemorrhage [Fatal]
  - Fluid retention [None]
  - Malaise [None]
  - Vomiting [None]
  - Feeding disorder [None]
  - General physical health deterioration [None]

NARRATIVE: CASE EVENT DATE: 20140613
